FAERS Safety Report 10048451 (Version 2)
Quarter: 2019Q3

REPORT INFORMATION
  Report Type: Spontaneous
  Country: FR (occurrence: FR)
  Receive Date: 20140331
  Receipt Date: 20190716
  Transmission Date: 20191004
  Serious: Yes (Hospitalization)
  Sender: FDA-Public Use
  Company Number: FR-PFIZER INC-2014084168

PATIENT
  Age: 67 Year
  Sex: Female

DRUGS (12)
  1. AUGMENTIN [Suspect]
     Active Substance: AMOXICILLIN\CLAVULANATE POTASSIUM
     Dosage: 1 G, 3X/DAY
     Dates: start: 20131113, end: 20140116
  2. PADERYL [CODEINE PHOSPHATE HEMIHYDRATE] [Suspect]
     Active Substance: CODEINE PHOSPHATE
     Dosage: 19.5 MG, 3X/DAY
     Dates: start: 20131113, end: 20140116
  3. LOXEN [Concomitant]
     Dosage: UNK
  4. LEVOTHYROX [Concomitant]
     Active Substance: LEVOTHYROXINE
     Dosage: UNK
  5. VITAMINE B1 B6 [Concomitant]
     Active Substance: PYRIDOXINE HYDROCHLORIDE\THIAMINE HYDROCHLORIDE
     Dosage: UNK
     Dates: start: 20131113
  6. ARIMIDEX [Concomitant]
     Active Substance: ANASTROZOLE
  7. TRIFLUCAN [Suspect]
     Active Substance: FLUCONAZOLE
     Dosage: 300 MG, DAILY
     Route: 048
     Dates: start: 20131113, end: 20140121
  8. QUESTRAN [Suspect]
     Active Substance: CHOLESTYRAMINE
     Dosage: 4 G, 3X/DAY
     Route: 048
     Dates: start: 20131113, end: 20140116
  9. METFORMIN [Concomitant]
     Active Substance: METFORMIN HYDROCHLORIDE
     Dosage: UNK
  10. IMODIUM [Concomitant]
     Active Substance: LOPERAMIDE HYDROCHLORIDE
     Dosage: UNK
     Dates: start: 20131113
  11. ATACAND [Concomitant]
     Active Substance: CANDESARTAN CILEXETIL
     Dosage: UNK
  12. INNOHEP [Suspect]
     Active Substance: TINZAPARIN SODIUM
     Dosage: UNK
     Dates: start: 20131113, end: 20140116

REACTIONS (5)
  - Pancytopenia [Not Recovered/Not Resolved]
  - Renal failure [Recovered/Resolved]
  - Rash [Recovered/Resolved]
  - Drug reaction with eosinophilia and systemic symptoms [Recovered/Resolved]
  - Haemophagocytic lymphohistiocytosis [Recovering/Resolving]

NARRATIVE: CASE EVENT DATE: 20131223
